FAERS Safety Report 22609492 (Version 1)
Quarter: 2023Q2

REPORT INFORMATION
  Report Type: Spontaneous
  Country: US (occurrence: None)
  Receive Date: 20230615
  Receipt Date: 20230615
  Transmission Date: 20230722
  Serious: Yes (unspecified)
  Sender: FDA-Public Use
  Company Number: None

PATIENT
  Sex: Male

DRUGS (1)
  1. JATENZO [Suspect]
     Active Substance: TESTOSTERONE UNDECANOATE
     Dosage: FREQUENCY : TWICE A DAY;?
     Route: 048
     Dates: start: 20230418

REACTIONS (3)
  - Headache [None]
  - Blood pressure increased [None]
  - Therapy change [None]
